FAERS Safety Report 14700060 (Version 1)
Quarter: 2018Q1

REPORT INFORMATION
  Report Type: Spontaneous
  Country: AU (occurrence: AU)
  Receive Date: 20180330
  Receipt Date: 20180330
  Transmission Date: 20180509
  Serious: Yes (Death, Other)
  Sender: FDA-Public Use
  Company Number: AU-IMPAX LABORATORIES, INC-2018-IPXL-00979

PATIENT
  Age: 52 Year
  Sex: Female

DRUGS (2)
  1. BALSALAZIDE [Suspect]
     Active Substance: BALSALAZIDE
     Indication: CROHN^S DISEASE
     Dosage: UNK
     Route: 065
  2. BUDESONIDE. [Suspect]
     Active Substance: BUDESONIDE
     Indication: CROHN^S DISEASE
     Dosage: UNK
     Route: 065

REACTIONS (5)
  - Cardiac tamponade [None]
  - Stress cardiomyopathy [None]
  - Pericardial effusion [Recovered/Resolved]
  - Lung adenocarcinoma [Fatal]
  - Metastatic neoplasm [Fatal]
